FAERS Safety Report 19684517 (Version 1)
Quarter: 2021Q3

REPORT INFORMATION
  Report Type: Spontaneous
  Country: US (occurrence: US)
  Receive Date: 20210811
  Receipt Date: 20210811
  Transmission Date: 20211014
  Serious: Yes (Life-Threatening, Hospitalization, Other)
  Sender: FDA-Public Use
  Company Number: US-YILING-US-2021-YPL-00087

PATIENT

DRUGS (2)
  1. NOT APPLICABLE [Suspect]
     Active Substance: HYOSCYAMINE SULFATE
     Route: 048
  2. AMLODIPINE BESYLATE. [Suspect]
     Active Substance: AMLODIPINE BESYLATE
     Route: 048

REACTIONS (3)
  - Suicide attempt [Unknown]
  - Shock [Recovered/Resolved]
  - Intentional overdose [Recovered/Resolved]
